FAERS Safety Report 6923440-5 (Version None)
Quarter: 2010Q3

REPORT INFORMATION
  Report Type: 
  Country: None (occurrence: None)
  Receive Date: 20100813
  Receipt Date: 20100803
  Transmission Date: 20110219
  Serious: Yes (Other)
  Sender: FDA-Public Use
  Company Number: BR-PFIZER INC-2010056048

PATIENT
  Age: 43 Year
  Sex: Female
  Weight: 52 kg

DRUGS (3)
  1. CHAMPIX [Suspect]
     Indication: TOBACCO USER
     Dosage: 0.5 MG, 1X/DAY, 1 TABLET
     Route: 048
     Dates: start: 20100430, end: 20100101
  2. CHAMPIX [Suspect]
     Dosage: 1 MG, 2X/DAY (EVERY 12 HOURS)
     Route: 048
     Dates: start: 20100101, end: 20100101
  3. FRONTAL [Concomitant]
     Indication: ANXIETY
     Dosage: 0.25 MG, 1X/DAY

REACTIONS (1)
  - BLOOD PRESSURE INCREASED [None]
